FAERS Safety Report 14565007 (Version 2)
Quarter: 2018Q1

REPORT INFORMATION
  Report Type: Report from Study
  Country: US (occurrence: US)
  Receive Date: 20180223
  Receipt Date: 20180322
  Transmission Date: 20180509
  Serious: No
  Sender: FDA-Public Use
  Company Number: PHEH2018US006987

PATIENT
  Sex: Female

DRUGS (1)
  1. COSENTYX [Suspect]
     Active Substance: SECUKINUMAB
     Indication: PRODUCT USED FOR UNKNOWN INDICATION
     Dosage: 150 MG, QMO
     Route: 058

REACTIONS (5)
  - Fine motor skill dysfunction [Unknown]
  - Needle issue [Unknown]
  - Pain in extremity [Unknown]
  - Peripheral swelling [Unknown]
  - Psoriatic arthropathy [Unknown]
